FAERS Safety Report 22248683 (Version 1)
Quarter: 2023Q2

REPORT INFORMATION
  Report Type: Spontaneous
  Country: ES (occurrence: ES)
  Receive Date: 20230425
  Receipt Date: 20230425
  Transmission Date: 20230721
  Serious: Yes (Other)
  Sender: FDA-Public Use
  Company Number: ES-SAMSUNG BIOEPIS-SB-2023-10842

PATIENT

DRUGS (1)
  1. ADALIMUMAB [Suspect]
     Active Substance: ADALIMUMAB
     Indication: COVID-19 prophylaxis
     Dosage: UNKNOWN
     Route: 065

REACTIONS (2)
  - Immunosuppression [Unknown]
  - Product use in unapproved indication [Unknown]
